FAERS Safety Report 9341949 (Version 1)
Quarter: 2013Q2

REPORT INFORMATION
  Report Type: Spontaneous
  Country: US (occurrence: None)
  Receive Date: 20130606
  Receipt Date: 20130606
  Transmission Date: 20140414
  Serious: Yes (Other)
  Sender: FDA-Public Use
  Company Number: 2013-223

PATIENT
  Age: 51 Year
  Sex: Male
  Weight: 95.2 kg

DRUGS (4)
  1. PRIALT (ZICONOTIDE) INTRATHECAL INFUSION [Suspect]
     Indication: POST LAMINECTOMY SYNDROME
     Dosage: UNK MCG, ONCE/HOUR, INTRATHECAL
     Dates: start: 201008
  2. CLONIDINE HCL (CLONIDINE HYDROCHLORIDE) INJECTION [Suspect]
     Indication: POST LAMINECTOMY SYNDROME
     Dosage: UNK MCG, ONCE/HOUR, INTRATHECAL
     Dates: start: 201105, end: 201109
  3. BUPIVACAINE HYDROCHLORIDE [Suspect]
     Indication: POST LAMINECTOMY SYNDROME
     Dosage: UNK MG, ONCE/ HOUR, INTRATHECAL
     Dates: start: 201109
  4. DILAUDID (HYDROMORPHONE HYDROCHLORIDE) INJECTION [Suspect]
     Indication: POST LAMINECTOMY SYNDROME
     Dosage: 0.0004 MG, ONCE/ HOUR, INTRATHECAL

REACTIONS (9)
  - Weight decreased [None]
  - Hallucination, visual [None]
  - Hallucination, auditory [None]
  - Tooth erosion [None]
  - Tooth extraction [None]
  - Oral discomfort [None]
  - Oral disorder [None]
  - Dysgeusia [None]
  - Weight decreased [None]
